FAERS Safety Report 4683419-3 (Version None)
Quarter: 2005Q2

REPORT INFORMATION
  Report Type: 
  Country: None (occurrence: None)
  Receive Date: 20050602
  Receipt Date: 20050325
  Transmission Date: 20051028
  Serious: No
  Sender: FDA-Public Use
  Company Number: 200510597BWH

PATIENT
  Age: 48 Year
  Sex: Male

DRUGS (15)
  1. LEVITRA [Suspect]
     Indication: ERECTILE DYSFUNCTION
  2. ACTOS [Concomitant]
  3. GLYBURIDE [Concomitant]
  4. TOPROL-XL [Concomitant]
  5. COUMADIN [Concomitant]
  6. HYDROCHLOROTHIAZIDE [Concomitant]
  7. LASIX [Concomitant]
  8. PERCOCET [Concomitant]
  9. XANAX [Concomitant]
  10. ALLEGRA [Concomitant]
  11. COMPAZINE [Concomitant]
  12. LANTUS [Concomitant]
  13. INSULIN [Concomitant]
  14. TAMOXIFEN [Concomitant]
  15. PREVACID [Concomitant]

REACTIONS (2)
  - HAEMATOCRIT INCREASED [None]
  - HAEMOGLOBIN INCREASED [None]
